FAERS Safety Report 6739769-X (Version None)
Quarter: 2010Q2

REPORT INFORMATION
  Report Type: 
  Country: None (occurrence: None)
  Receive Date: 20100525
  Receipt Date: 20100519
  Transmission Date: 20101027
  Serious: Yes (Disabling, Other)
  Sender: FDA-Public Use
  Company Number: FR-BRISTOL-MYERS SQUIBB COMPANY-15113178

PATIENT
  Age: 58 Year
  Sex: Male

DRUGS (1)
  1. ELISOR TABS 20 MG [Suspect]
     Indication: HYPERCHOLESTEROLAEMIA
     Dates: start: 19950101, end: 20081106

REACTIONS (3)
  - MUSCLE RUPTURE [None]
  - TENDON DISORDER [None]
  - TENDON RUPTURE [None]
